FAERS Safety Report 5079404-2 (Version None)
Quarter: 2006Q3

REPORT INFORMATION
  Report Type: 
  Country: None (occurrence: None)
  Receive Date: 20060814
  Receipt Date: 20051128
  Transmission Date: 20061208
  Serious: Yes (Other)
  Sender: FDA-Public Use
  Company Number: BR-ROCHE-426793

PATIENT
  Sex: Male

DRUGS (3)
  1. ROACUTAN [Suspect]
     Indication: ACNE
     Dosage: DOSING REGIMEN STATED AS IRREGULARLY.
     Dates: start: 20051008, end: 20051022
  2. ROACUTAN [Suspect]
     Dates: start: 20050215, end: 20051007
  3. LEVONORGESTREL + ETHINYL ESTRADIOL [Concomitant]
     Indication: CONTRACEPTION
     Dosage: DOSING REGIMEN STATED AS IRREGULARLY. DRUG NAME STATED AS LEVEL.
     Dates: start: 20050215, end: 20051015

REACTIONS (4)
  - CAESAREAN SECTION [None]
  - DRUG EXPOSURE BEFORE PREGNANCY [None]
  - NO ADVERSE EFFECT [None]
  - NORMAL NEWBORN [None]
